FAERS Safety Report 9881727 (Version 1)
Quarter: 2014Q1

REPORT INFORMATION
  Report Type: Spontaneous
  Country: BR (occurrence: BR)
  Receive Date: 20140207
  Receipt Date: 20140207
  Transmission Date: 20141002
  Serious: Yes (Other)
  Sender: FDA-Public Use
  Company Number: BR-009507513-1402BRA001372

PATIENT
  Age: 41 Year
  Sex: Female
  Weight: 67 kg

DRUGS (2)
  1. NUVARING [Suspect]
     Indication: CONTRACEPTION
     Dosage: UNK, CYCLICAL
     Route: 067
     Dates: start: 2004, end: 20131021
  2. NUVARING [Suspect]
     Dosage: UNK, CYCLICAL
     Route: 067
     Dates: start: 20140102

REACTIONS (5)
  - Gastroplasty [Unknown]
  - Blood cholesterol increased [Recovering/Resolving]
  - Incorrect drug administration duration [Unknown]
  - Metrorrhagia [Recovered/Resolved]
  - Dysuria [Recovered/Resolved]
